FAERS Safety Report 6814457-X (Version None)
Quarter: 2010Q3

REPORT INFORMATION
  Report Type: 
  Country: None (occurrence: None)
  Receive Date: 20100702
  Receipt Date: 20100622
  Transmission Date: 20110219
  Serious: Yes (Other)
  Sender: FDA-Public Use
  Company Number: PHHY2010US26188

PATIENT
  Sex: Female
  Weight: 150 kg

DRUGS (1)
  1. RECLAST [Suspect]
     Indication: OSTEITIS DEFORMANS
     Dosage: YEARLY
     Route: 042
     Dates: start: 20080714, end: 20090714

REACTIONS (3)
  - DRUG ADMINISTRATION ERROR [None]
  - HYPERTENSION [None]
  - OSTEITIS DEFORMANS [None]
